FAERS Safety Report 22801154 (Version 2)
Quarter: 2023Q4

REPORT INFORMATION
  Report Type: Report from Study
  Country: US (occurrence: US)
  Receive Date: 20230809
  Receipt Date: 20231212
  Transmission Date: 20240109
  Serious: Yes (Hospitalization, Other)
  Sender: FDA-Public Use
  Company Number: US-ABBVIE-5358177

PATIENT
  Sex: Female

DRUGS (3)
  1. SKYRIZI [Suspect]
     Active Substance: RISANKIZUMAB-RZAA
     Indication: Psoriasis
     Route: 058
     Dates: start: 20230324, end: 20230324
  2. SKYRIZI [Suspect]
     Active Substance: RISANKIZUMAB-RZAA
     Route: 058
     Dates: start: 20230616, end: 20230616
  3. SKYRIZI [Suspect]
     Active Substance: RISANKIZUMAB-RZAA
     Route: 058
     Dates: start: 20230224, end: 20230224

REACTIONS (7)
  - Cerebral haemorrhage [Not Recovered/Not Resolved]
  - Facial discomfort [Unknown]
  - Fall [Unknown]
  - Seizure [Not Recovered/Not Resolved]
  - Headache [Unknown]
  - Head injury [Unknown]
  - Head discomfort [Unknown]

NARRATIVE: CASE EVENT DATE: 20230101
